FAERS Safety Report 22059269 (Version 1)
Quarter: 2023Q1

REPORT INFORMATION
  Report Type: Other
  Country: DE (occurrence: None)
  Receive Date: 20230303
  Receipt Date: 20230303
  Transmission Date: 20230418
  Serious: Yes (Death, Hospitalization)
  Sender: FDA-Public Use
  Company Number: DE-Navinta LLC-000401

PATIENT
  Age: 60 Year
  Sex: Female

DRUGS (4)
  1. RIBAVIRIN [Suspect]
     Active Substance: RIBAVIRIN
     Indication: Haemorrhagic fever with renal syndrome
     Dosage: 200 MG/D
  2. PIPERACILLIN SODIUM\TAZOBACTAM SODIUM [Suspect]
     Active Substance: PIPERACILLIN SODIUM\TAZOBACTAM SODIUM
     Indication: Pneumonia
  3. CLARITHROMYCIN [Suspect]
     Active Substance: CLARITHROMYCIN
     Indication: Pneumonia
  4. HIZENTRA [Suspect]
     Active Substance: HUMAN IMMUNOGLOBULIN G
     Indication: Immunodeficiency common variable
     Dosage: 12 G SUBCUTANEOUSLY EVERY WEEK
     Route: 058

REACTIONS (1)
  - Therapy non-responder [Fatal]
